FAERS Safety Report 19520417 (Version 3)
Quarter: 2021Q3

REPORT INFORMATION
  Report Type: Spontaneous
  Country: JP (occurrence: JP)
  Receive Date: 20210712
  Receipt Date: 20210819
  Transmission Date: 20211014
  Serious: Yes (Hospitalization, Other)
  Sender: FDA-Public Use
  Company Number: JP-ROCHE-2866931

PATIENT
  Age: 72 Year
  Sex: Male
  Weight: 42.5 kg

DRUGS (11)
  1. 5?FU [FLUOROURACIL] [Concomitant]
     Active Substance: FLUOROURACIL
     Indication: COLON CANCER
     Dosage: UNK
     Route: 042
     Dates: start: 20201015, end: 20210319
  2. AVASTIN [Suspect]
     Active Substance: BEVACIZUMAB
     Route: 041
     Dates: start: 20130322, end: 20130716
  3. IRINOTECAN HYDROCHLORIDE. [Concomitant]
     Active Substance: IRINOTECAN HYDROCHLORIDE
     Indication: COLON CANCER
     Dosage: UNK
     Route: 041
     Dates: start: 20201015, end: 20210319
  4. OXALIPLATIN. [Concomitant]
     Active Substance: OXALIPLATIN
     Route: 041
     Dates: start: 20130322, end: 20130716
  5. OXALIPLATIN. [Concomitant]
     Active Substance: OXALIPLATIN
     Route: 041
     Dates: start: 20190313, end: 20190617
  6. AVASTIN [Suspect]
     Active Substance: BEVACIZUMAB
     Route: 041
     Dates: start: 20200218, end: 20200513
  7. AVASTIN [Suspect]
     Active Substance: BEVACIZUMAB
     Route: 041
     Dates: start: 20201015, end: 20210319
  8. AVASTIN [Suspect]
     Active Substance: BEVACIZUMAB
     Indication: COLON CANCER
     Route: 041
     Dates: start: 20190313, end: 20190617
  9. CLOPIDOGREL [Suspect]
     Active Substance: CLOPIDOGREL BISULFATE
     Indication: PRODUCT USED FOR UNKNOWN INDICATION
     Dosage: UNK
     Route: 048
     Dates: start: 20210405, end: 20210414
  10. BAYASPIRIN [Suspect]
     Active Substance: ASPIRIN
     Indication: PRODUCT USED FOR UNKNOWN INDICATION
     Dosage: UNK
     Route: 048
     Dates: start: 20210405, end: 20210414
  11. CALCIUM LEVOFOLINATE [Concomitant]
     Active Substance: LEVOLEUCOVORIN CALCIUM
     Indication: COLON CANCER
     Route: 041

REACTIONS (4)
  - Thrombotic cerebral infarction [Not Recovered/Not Resolved]
  - Haemorrhagic cerebral infarction [Recovering/Resolving]
  - Cerebral haemorrhage [Recovering/Resolving]
  - Thrombotic cerebral infarction [Not Recovered/Not Resolved]

NARRATIVE: CASE EVENT DATE: 20210326
